FAERS Safety Report 8889331 (Version 1)
Quarter: 2012Q4

REPORT INFORMATION
  Report Type: Spontaneous
  Country: US (occurrence: None)
  Receive Date: 20121102
  Receipt Date: 20121102
  Transmission Date: 20130627
  Serious: Yes (Hospitalization)
  Sender: FDA-Public Use
  Company Number: None

PATIENT
  Sex: Male

DRUGS (1)
  1. CYMBALTA [Suspect]
     Indication: GENERALIZED ANXIETY DISORDER
     Dosage: 60 mg Once daily po
     Route: 048
     Dates: start: 20110601, end: 20121010

REACTIONS (1)
  - Mania [None]
